FAERS Safety Report 23874667 (Version 1)
Quarter: 2024Q2

REPORT INFORMATION
  Report Type: Spontaneous
  Country: AU (occurrence: AU)
  Receive Date: 20240520
  Receipt Date: 20240520
  Transmission Date: 20240716
  Serious: Yes (Other)
  Sender: FDA-Public Use
  Company Number: AU-SANDOZ-SDZ2024AU049796

PATIENT
  Age: 42 Year
  Sex: Male

DRUGS (3)
  1. MYCOPHENOLATE MOFETIL [Suspect]
     Active Substance: MYCOPHENOLATE MOFETIL
     Indication: Neurosarcoidosis
     Dosage: UNK
     Route: 065
     Dates: start: 202211
  2. RITUXIMAB [Suspect]
     Active Substance: RITUXIMAB
     Dosage: 162 MG, QW
     Route: 042
  3. RITUXIMAB [Suspect]
     Active Substance: RITUXIMAB
     Indication: Neurosarcoidosis
     Dosage: 6 MG/KG
     Route: 042
     Dates: start: 202307

REACTIONS (3)
  - Fine motor skill dysfunction [Unknown]
  - Myelitis [Unknown]
  - Off label use [Unknown]

NARRATIVE: CASE EVENT DATE: 20230401
